FAERS Safety Report 13577336 (Version 1)
Quarter: 2017Q2

REPORT INFORMATION
  Report Type: Spontaneous
  Country: US (occurrence: US)
  Receive Date: 20170524
  Receipt Date: 20170524
  Transmission Date: 20170830
  Serious: Yes (Congenital Anomaly, Other)
  Sender: FDA-Public Use
  Company Number: US-MYLANLABS-2017M1031225

PATIENT

DRUGS (2)
  1. AMLODIPINE [Concomitant]
     Active Substance: AMLODIPINE BESYLATE
     Indication: HYPERTENSION
     Route: 065
  2. ETIDRONATE [Suspect]
     Active Substance: ETIDRONATE DISODIUM
     Indication: VASCULAR CALCIFICATION
     Route: 065

REACTIONS (4)
  - Skull malformation [Unknown]
  - Fontanelle bulging [Unknown]
  - Rickets [Unknown]
  - Rib fracture [Unknown]
